FAERS Safety Report 6879270-6 (Version None)
Quarter: 2010Q3

REPORT INFORMATION
  Report Type: 
  Country: None (occurrence: None)
  Receive Date: 20100728
  Receipt Date: 20091231
  Transmission Date: 20110219
  Serious: No
  Sender: FDA-Public Use
  Company Number: US-ABBOTT-10P-163-0617821-00

PATIENT
  Sex: Female
  Weight: 52.21 kg

DRUGS (4)
  1. SYNTHROID [Suspect]
     Indication: HYPOTHYROIDISM
     Dates: start: 19710101, end: 20080101
  2. SYNTHROID [Suspect]
     Dates: start: 20080101
  3. BENICAR [Concomitant]
     Indication: HYPERTENSION
  4. XANAX [Concomitant]
     Indication: SLEEP DISORDER THERAPY

REACTIONS (7)
  - ARTHRALGIA [None]
  - ARTHROPATHY [None]
  - BACK PAIN [None]
  - FATIGUE [None]
  - HAND DEFORMITY [None]
  - MUSCLE SPASMS [None]
  - THYROID FUNCTION TEST ABNORMAL [None]
